FAERS Safety Report 6370654-1 (Version None)
Quarter: 2009Q3

REPORT INFORMATION
  Report Type: 
  Country: None (occurrence: None)
  Receive Date: 20090921
  Receipt Date: 20090921
  Transmission Date: 20100115
  Serious: No
  Sender: FDA-Public Use
  Company Number: None

PATIENT
  Sex: Female

DRUGS (1)
  1. AZASITE [Suspect]
     Indication: INFECTION
     Dosage: 1 DROP QHS 0.S.
     Dates: start: 20090910, end: 20090917

REACTIONS (1)
  - PRODUCT DROPPER ISSUE [None]
